FAERS Safety Report 7107503-X (Version None)
Quarter: 2010Q4

REPORT INFORMATION
  Report Type: 
  Country: None (occurrence: None)
  Receive Date: 20101117
  Receipt Date: 20101108
  Transmission Date: 20110411
  Serious: Yes (Death, Hospitalization, Other)
  Sender: FDA-Public Use
  Company Number: US-TEVA-254805USA

PATIENT
  Age: 71 Year
  Sex: Female

DRUGS (5)
  1. VERAPAMIL [Suspect]
     Indication: HYPERTENSION
  2. ATORVASTATIN [Suspect]
  3. LISINOPRIL [Concomitant]
  4. INSULIN [Concomitant]
  5. FAMOTIDINE [Concomitant]

REACTIONS (2)
  - DRUG INTERACTION [None]
  - MULTI-ORGAN FAILURE [None]
